FAERS Safety Report 5104353-0 (Version None)
Quarter: 2006Q3

REPORT INFORMATION
  Report Type: 
  Country: None (occurrence: None)
  Receive Date: 20060911
  Receipt Date: 20060911
  Transmission Date: 20061208
  Serious: Yes (Other)
  Sender: FDA-Public Use
  Company Number: None

PATIENT
  Sex: Female
  Weight: 88.905 kg

DRUGS (2)
  1. ACTOS [Suspect]
     Indication: BLOOD GLUCOSE INCREASED
     Dosage: 15 MG   DAILY   PO
     Route: 048
     Dates: start: 20060705, end: 20060908
  2. ACTOS [Suspect]
     Indication: DIABETES MELLITUS NON-INSULIN-DEPENDENT
     Dosage: 15 MG   DAILY   PO
     Route: 048
     Dates: start: 20060705, end: 20060908

REACTIONS (8)
  - ADVERSE DRUG REACTION [None]
  - CHEST DISCOMFORT [None]
  - FATIGUE [None]
  - MOOD SWINGS [None]
  - MUSCLE SPASMS [None]
  - MYALGIA [None]
  - VISION BLURRED [None]
  - WEIGHT INCREASED [None]
